FAERS Safety Report 7424702-8 (Version None)
Quarter: 2011Q2

REPORT INFORMATION
  Report Type: 
  Country: None (occurrence: None)
  Receive Date: 20110419
  Receipt Date: 20110411
  Transmission Date: 20111010
  Serious: Yes (Other)
  Sender: FDA-Public Use
  Company Number: US-B.I. PHARMACEUTICALS,INC./RIDGEFIELD-2011-BP-03364BP

PATIENT
  Sex: Female

DRUGS (8)
  1. CATAPRES-TTS-1 [Suspect]
     Dosage: 0.2 MG
     Route: 061
  2. FUROSEMIDE [Concomitant]
  3. KLOR-CON [Concomitant]
  4. CATAPRES-TTS-1 [Suspect]
     Indication: HYPERTENSION
     Dosage: 0.1 MG
     Route: 061
     Dates: start: 20080301
  5. CATAPRES-TTS-1 [Suspect]
     Dosage: 0.3 MG
     Route: 061
  6. METOPROLOL SUCCINATE [Concomitant]
     Indication: HYPERTENSION
  7. METFORMIN HCL [Concomitant]
  8. DIOVAN [Concomitant]
     Indication: HYPERTENSION

REACTIONS (2)
  - HYPERTENSION [None]
  - DRUG INEFFECTIVE [None]
